FAERS Safety Report 15296676 (Version 1)
Quarter: 2018Q3

REPORT INFORMATION
  Report Type: Spontaneous
  Country: FR (occurrence: FR)
  Receive Date: 20180820
  Receipt Date: 20180820
  Transmission Date: 20181010
  Serious: Yes (Hospitalization)
  Sender: FDA-Public Use
  Company Number: FR-BAXTER-2018BAX021743

PATIENT
  Age: 68 Year
  Sex: Female
  Weight: 65 kg

DRUGS (3)
  1. HOLOXAN 2000 MG, POUDRE POUR USAGE PARENT?RAL [Suspect]
     Active Substance: IFOSFAMIDE
     Indication: HISTIOCYTIC SARCOMA
     Route: 042
     Dates: start: 20180704, end: 20180704
  2. ETOPOSIDE MYLAN [Concomitant]
     Active Substance: ETOPOSIDE
     Indication: HISTIOCYTIC SARCOMA
     Dosage: DOSAGE FORM: SOLUTION TO DILUTE FOR INFUSION
     Route: 042
     Dates: start: 20180703, end: 20180705
  3. CARBOPLATIN ACCORD [Concomitant]
     Active Substance: CARBOPLATIN
     Indication: HISTIOCYTIC SARCOMA
     Route: 042
     Dates: start: 20180704, end: 20180704

REACTIONS (4)
  - Somnolence [Recovered/Resolved]
  - Psychomotor skills impaired [Recovered/Resolved]
  - Encephalopathy [Recovered/Resolved]
  - Confusional state [Recovered/Resolved]

NARRATIVE: CASE EVENT DATE: 20180706
